FAERS Safety Report 9692528 (Version 1)
Quarter: 2013Q4

REPORT INFORMATION
  Report Type: Report from Study
  Country: CA (occurrence: CA)
  Receive Date: 20131118
  Receipt Date: 20131118
  Transmission Date: 20140711
  Serious: Yes (Other)
  Sender: FDA-Public Use
  Company Number: CA-JNJFOC-20131106934

PATIENT
  Age: 43 Year
  Sex: Male

DRUGS (2)
  1. REMICADE [Suspect]
     Indication: CROHN^S DISEASE
     Route: 042
     Dates: start: 20111215
  2. IMURAN [Concomitant]
     Route: 065
     Dates: end: 2013

REACTIONS (4)
  - Tongue disorder [Unknown]
  - Purulence [Unknown]
  - Swollen tongue [Unknown]
  - Dental care [Unknown]
